FAERS Safety Report 5912854-8 (Version None)
Quarter: 2008Q4

REPORT INFORMATION
  Report Type: 
  Country: None (occurrence: None)
  Receive Date: 20081008
  Receipt Date: 20081002
  Transmission Date: 20090506
  Serious: Yes (Hospitalization)
  Sender: FDA-Public Use
  Company Number: US-GENENTECH-268618

PATIENT
  Sex: Female
  Weight: 61.6 kg

DRUGS (3)
  1. HERCEPTIN [Suspect]
     Indication: BREAST CANCER
     Dosage: 123 MG, UNK
     Route: 042
     Dates: start: 20080819
  2. ABRAXANE [Suspect]
     Indication: BREAST CANCER
     Dosage: 164 MG, UNK
     Route: 042
     Dates: start: 20080819
  3. CARBOPLATIN [Suspect]
     Indication: BREAST CANCER
     Dosage: 197 MG, UNK
     Route: 042
     Dates: start: 20080819

REACTIONS (1)
  - HERPES ZOSTER [None]
